FAERS Safety Report 8070098-0 (Version None)
Quarter: 2012Q1

REPORT INFORMATION
  Report Type: 
  Country: None (occurrence: None)
  Receive Date: 20120125
  Receipt Date: 20120119
  Transmission Date: 20120608
  Serious: Yes (Other)
  Sender: FDA-Public Use
  Company Number: BR-SANOFI-AVENTIS-2012SA004347

PATIENT
  Age: 63 Year
  Sex: Female
  Weight: 59 kg

DRUGS (6)
  1. APIDRA [Suspect]
     Dosage: DOSE: ACCORDING TO CARBOHYDRATES COUNTING
     Route: 065
     Dates: start: 20110101
  2. LATANOPROST [Concomitant]
     Indication: GLAUCOMA
     Route: 047
     Dates: start: 20100601
  3. APIDRA [Suspect]
     Indication: TYPE 2 DIABETES MELLITUS
     Route: 065
     Dates: start: 20100101
  4. LISINOPRIL [Concomitant]
     Dosage: 1 TABLET BEFORE DINNER
     Route: 048
     Dates: start: 20020101
  5. VERAPAMIL HYDROCHLORIDE [Concomitant]
     Dosage: 1 TABLET IN THE MORNING
     Route: 048
     Dates: start: 20020101
  6. LANTUS [Suspect]
     Indication: TYPE 2 DIABETES MELLITUS
     Route: 065
     Dates: start: 20090101

REACTIONS (2)
  - INTRAOCULAR PRESSURE INCREASED [None]
  - GLAUCOMA [None]
